FAERS Safety Report 6647815-7 (Version None)
Quarter: 2010Q1

REPORT INFORMATION
  Report Type: 
  Country: None (occurrence: None)
  Receive Date: 20100318
  Receipt Date: 20100315
  Transmission Date: 20100710
  Serious: Yes (Hospitalization)
  Sender: FDA-Public Use
  Company Number: 2010SP007949

PATIENT
  Age: 59 Year
  Sex: Female

DRUGS (5)
  1. MIRTAZAPINE [Suspect]
     Indication: MAJOR DEPRESSION
     Dosage: 1 DF;QD;PO
     Route: 048
     Dates: start: 20091020, end: 20091104
  2. PROZAC [Suspect]
     Indication: MAJOR DEPRESSION
     Dosage: PO
     Route: 048
     Dates: start: 20091020, end: 20091029
  3. THERALENE (ALIMEMZAINE TARTRATE) [Suspect]
     Indication: MAJOR DEPRESSION
     Dosage: 40 GTT;QD;PO
     Route: 048
     Dates: start: 20091020, end: 20091109
  4. PAROXETINE HYDROCHLORIDE [Suspect]
     Indication: MAJOR DEPRESSION
     Dosage: PO
     Route: 048
     Dates: start: 20091020, end: 20091103
  5. LEXOMIL [Concomitant]

REACTIONS (2)
  - HEPATITIS CHOLESTATIC [None]
  - LIVER INJURY [None]
